FAERS Safety Report 14660030 (Version 4)
Quarter: 2020Q2

REPORT INFORMATION
  Report Type: Report from Study
  Country: GR (occurrence: GR)
  Receive Date: 20180320
  Receipt Date: 20200420
  Transmission Date: 20200713
  Serious: Yes (Death, Life-Threatening, Hospitalization, Other)
  Sender: FDA-Public Use
  Company Number: GR-BAXTER-2018BAX008574

PATIENT
  Age: 48 Year
  Sex: Male
  Weight: 59 kg

DRUGS (11)
  1. IMNOVID [Suspect]
     Active Substance: POMALIDOMIDE
     Indication: PLASMA CELL MYELOMA RECURRENT
     Dosage: DOSAGE FORM: UNSPECIFIED,ON DAYS 1, 2, 3 AND 4 OF EACH CYCLE, DAILY
     Route: 048
     Dates: start: 20170404, end: 20170414
  2. VELCADE [Suspect]
     Active Substance: BORTEZOMIB
     Indication: PLASMA CELL MYELOMA RECURRENT
     Dosage: DOSAGE FORM: LYOPHILIZED POWDER, INJECTION; ON DAYS 1, 4 AND 8 OF EACH CYCLE, DAILY
     Route: 058
     Dates: start: 20170404, end: 20170502
  3. VELCADE [Suspect]
     Active Substance: BORTEZOMIB
     Dosage: DOSAGE FORM: LYOPHILIZED POWDER, ON DAYS 1, 4 AND 8 OF EACH CYCLE, DAILY
     Route: 058
     Dates: start: 20160628, end: 20161201
  4. ENDOXAN 1000 MG - POWDER FOR SOLUTION FOR INJECTION [Suspect]
     Active Substance: CYCLOPHOSPHAMIDE
     Indication: PLASMA CELL MYELOMA RECURRENT
     Dosage: DOSAGE FORM: UNSPECIFIED, ON DAYS 1,2,3 AND 4 OF EACH CYCLE, DAILY
     Route: 042
     Dates: start: 20160628, end: 20170120
  5. DEXAMETHASONE. [Suspect]
     Active Substance: DEXAMETHASONE
     Indication: PLASMA CELL MYELOMA RECURRENT
     Dosage: DOSAGE FORM: UNSPECIFIED, 1,2,3,4 OF EACH CYCLE, DAILY
     Route: 048
     Dates: start: 20170404, end: 20170502
  6. VELCADE [Suspect]
     Active Substance: BORTEZOMIB
     Dosage: DOSAGE FORM: LYOPHILIZED POWDER, ON DAYS 1, 4 AND 8 OF EACH CYCLE, DAILY
     Route: 058
     Dates: start: 20170116, end: 20170120
  7. ADRIAMYCIN [Suspect]
     Active Substance: DOXORUBICIN HYDROCHLORIDE
     Indication: PLASMA CELL MYELOMA RECURRENT
     Dosage: ON DAYS 1, 2, 3 AND 4 OF EACH CYCLE, DAILY
     Route: 042
     Dates: start: 20160628, end: 20170120
  8. ETOPOSIDE. [Suspect]
     Active Substance: ETOPOSIDE
     Indication: PLASMA CELL MYELOMA RECURRENT
     Dosage: DOSAGE FORM: UNSPECIFIED, ON DAYS 1,2,3,4 OF EACH CYCLE, DAILY
     Route: 065
     Dates: start: 20160628, end: 20170120
  9. REVLIMID [Suspect]
     Active Substance: LENALIDOMIDE
     Indication: PLASMA CELL MYELOMA RECURRENT
     Dosage: DOSAGE FORM: UNSPECIFIED, DAILY
     Route: 048
     Dates: start: 20170425
  10. DEXAMETHASONE. [Suspect]
     Active Substance: DEXAMETHASONE
     Dosage: DOSAGE FORM: UNSPECIFIED, 1,2,3,4 OF EACH CYCLE.
     Route: 048
     Dates: start: 20160628, end: 20170120
  11. PLATINOL [Suspect]
     Active Substance: CISPLATIN
     Indication: PLASMA CELL MYELOMA RECURRENT
     Dosage: DOSAGE FORM: UNSPECIFIED,ON DAYS 1,2,3 AND 4 OF EACH CYCLE, DAILY
     Route: 042
     Dates: start: 20160628, end: 20170120

REACTIONS (7)
  - Pyrexia [Fatal]
  - Plasma cell myeloma [Fatal]
  - Multiple organ dysfunction syndrome [Fatal]
  - Respiratory tract infection [Recovered/Resolved]
  - Febrile neutropenia [Recovered/Resolved with Sequelae]
  - Plasma cell leukaemia [Fatal]
  - Pyrexia [Recovered/Resolved]

NARRATIVE: CASE EVENT DATE: 20170104
